FAERS Safety Report 25322385 (Version 1)
Quarter: 2025Q2

REPORT INFORMATION
  Report Type: Spontaneous
  Country: US (occurrence: US)
  Receive Date: 20250516
  Receipt Date: 20250516
  Transmission Date: 20250716
  Serious: Yes (Other)
  Sender: APOTEX
  Company Number: US-APOTEX-2025AP007307

PATIENT
  Sex: Male

DRUGS (14)
  1. ARIPIPRAZOLE [Suspect]
     Active Substance: ARIPIPRAZOLE
     Indication: Major depression
     Dosage: UNK, QD
     Route: 065
  2. ARIPIPRAZOLE [Suspect]
     Active Substance: ARIPIPRAZOLE
     Indication: Bipolar disorder
  3. BUPROPION [Suspect]
     Active Substance: BUPROPION
     Indication: Major depression
     Dosage: UNK UNK, QD
     Route: 065
  4. BUPROPION [Suspect]
     Active Substance: BUPROPION
     Indication: Bipolar disorder
  5. RITALIN [Suspect]
     Active Substance: METHYLPHENIDATE HYDROCHLORIDE
     Indication: Major depression
     Dosage: UNK, QD
     Route: 065
  6. RITALIN [Suspect]
     Active Substance: METHYLPHENIDATE HYDROCHLORIDE
     Indication: Bipolar disorder
  7. VENLAFAXINE [Suspect]
     Active Substance: VENLAFAXINE HYDROCHLORIDE
     Indication: Major depression
     Dosage: UNK, QD
     Route: 065
  8. VENLAFAXINE [Suspect]
     Active Substance: VENLAFAXINE HYDROCHLORIDE
     Indication: Bipolar disorder
  9. CLONAZEPAM [Suspect]
     Active Substance: CLONAZEPAM
     Indication: Major depression
     Dosage: UNK, QD
     Route: 065
  10. CLONAZEPAM [Suspect]
     Active Substance: CLONAZEPAM
     Indication: Bipolar disorder
  11. BENADRYL [Suspect]
     Active Substance: DIPHENHYDRAMINE HYDROCHLORIDE
     Indication: Major depression
     Dosage: UNK, QD
     Route: 065
  12. BENADRYL [Suspect]
     Active Substance: DIPHENHYDRAMINE HYDROCHLORIDE
     Indication: Bipolar disorder
  13. LUNESTA [Suspect]
     Active Substance: ESZOPICLONE
     Indication: Major depression
     Dosage: UNK, QD
     Route: 065
  14. LUNESTA [Suspect]
     Active Substance: ESZOPICLONE
     Indication: Bipolar disorder

REACTIONS (5)
  - Erectile dysfunction [Unknown]
  - Mental fatigue [Unknown]
  - Personal relationship issue [Unknown]
  - Condition aggravated [Unknown]
  - Drug ineffective [Unknown]
